FAERS Safety Report 18773693 (Version 1)
Quarter: 2021Q1

REPORT INFORMATION
  Report Type: Spontaneous
  Country: JP (occurrence: JP)
  Receive Date: 20210122
  Receipt Date: 20210122
  Transmission Date: 20210419
  Serious: Yes (Hospitalization)
  Sender: FDA-Public Use
  Company Number: JP-MYLANLABS-2021M1003112

PATIENT
  Age: 37 Year
  Sex: Female

DRUGS (1)
  1. PREDNISOLONE. [Suspect]
     Active Substance: PREDNISOLONE
     Indication: SYSTEMIC LUPUS ERYTHEMATOSUS
     Dosage: THE WOMAN RECEIVED PREDNISOLONE SINCE THE INITIAL DIAGNOSIS OF SLE; DOSES RANGED FROM 5 TO 15 MG DUR
     Route: 065

REACTIONS (4)
  - Foetal growth restriction [Unknown]
  - Placenta accreta [Recovered/Resolved]
  - Maternal exposure during pregnancy [Recovered/Resolved]
  - Uterine disorder [Unknown]
